FAERS Safety Report 6070896-9 (Version None)
Quarter: 2009Q1

REPORT INFORMATION
  Report Type: 
  Country: None (occurrence: None)
  Receive Date: 20090209
  Receipt Date: 20081208
  Transmission Date: 20090719
  Serious: No
  Sender: FDA-Public Use
  Company Number: A0759651A

PATIENT
  Age: 69 Year
  Sex: Female

DRUGS (2)
  1. PAXIL [Suspect]
     Indication: DEPRESSION
     Dosage: 20MG PER DAY
     Route: 048
  2. MAGNESIUM HYDROXIDE+ALUMINIUM HYDROXIDE+SIMETHICONE [Suspect]
     Indication: DRUG USE FOR UNKNOWN INDICATION
     Dosage: 6TSP PER DAY
     Route: 048
     Dates: start: 20081102, end: 20081102

REACTIONS (1)
  - DYSPEPSIA [None]
